FAERS Safety Report 10577247 (Version 2)
Quarter: 2015Q3

REPORT INFORMATION
  Report Type: Spontaneous
  Country: US (occurrence: US)
  Receive Date: 20141111
  Receipt Date: 20150818
  Transmission Date: 20151125
  Serious: No
  Sender: FDA-Public Use
  Company Number: US-GILEAD-2014-0121647

PATIENT
  Age: 29 Year
  Sex: Female

DRUGS (5)
  1. ORENITRAM [Suspect]
     Active Substance: TREPROSTINIL
     Indication: PRODUCT USED FOR UNKNOWN INDICATION
     Dosage: UNK MG, UNK
     Route: 065
     Dates: start: 20141031
  2. LETAIRIS [Suspect]
     Active Substance: AMBRISENTAN
     Indication: PRODUCT USED FOR UNKNOWN INDICATION
     Dosage: 10 MG, QD
     Route: 065
     Dates: start: 20140728
  3. ORENITRAM [Suspect]
     Active Substance: TREPROSTINIL
     Dosage: UNK MG, UNK
     Route: 065
  4. SILDENAFIL CITRATE. [Concomitant]
     Active Substance: SILDENAFIL CITRATE
  5. WARFARIN [Concomitant]
     Active Substance: WARFARIN

REACTIONS (5)
  - Palpitations [Unknown]
  - Feeling hot [Unknown]
  - Headache [Unknown]
  - Flushing [Unknown]
  - Lip discolouration [Unknown]
